FAERS Safety Report 26150037 (Version 1)
Quarter: 2025Q4

REPORT INFORMATION
  Report Type: Spontaneous
  Country: US (occurrence: US)
  Receive Date: 20251212
  Receipt Date: 20251212
  Transmission Date: 20260117
  Serious: No
  Sender: PADAGIS
  Company Number: US-PADAGIS-2025PAD01537

PATIENT

DRUGS (3)
  1. PERMETHRIN [Suspect]
     Active Substance: PERMETHRIN
     Indication: Scabies
     Dosage: APPLYING TO BODY FOR 14 HOURS PER DAY, ALL OVER HIS SKIN ONE DAY, THEN REPEAT THE DOSE SEVEN DAYS LA
     Route: 061
     Dates: start: 20251128
  2. PERMETHRIN [Suspect]
     Active Substance: PERMETHRIN
     Indication: Tinea infection
     Dosage: APPLYING TO BODY FOR 14 HOURS PER DAY, CHANGED TO USE THE MEDICATION ONCE DAILY FOR 14 DAYS
     Route: 061
  3. PERMETHRIN [Suspect]
     Active Substance: PERMETHRIN
     Indication: Bed bug infestation

REACTIONS (3)
  - Application site dryness [Unknown]
  - Condition aggravated [Unknown]
  - Drug ineffective for unapproved indication [Unknown]
